FAERS Safety Report 4657738-0 (Version None)
Quarter: 2005Q2

REPORT INFORMATION
  Report Type: 
  Country: None (occurrence: None)
  Receive Date: 20050404
  Receipt Date: 20041217
  Transmission Date: 20051028
  Serious: No
  Sender: FDA-Public Use
  Company Number: USA041286445

PATIENT
  Age: 59 Year
  Sex: Female

DRUGS (5)
  1. CYMBALTA [Suspect]
     Indication: BACK PAIN
     Dosage: 30 MG IN THE MORNING
     Dates: start: 20041201, end: 20041217
  2. LEXAPRO [Concomitant]
  3. CELEXA [Concomitant]
  4. VITAMINS [Concomitant]
  5. HORMONE REPLACEMENT THERAPY [Concomitant]

REACTIONS (4)
  - COUGH [None]
  - LIP PAIN [None]
  - RHINORRHOEA [None]
  - SWELLING FACE [None]
